FAERS Safety Report 21024708 (Version 2)
Quarter: 2022Q3

REPORT INFORMATION
  Report Type: Report from Study
  Country: US (occurrence: US)
  Receive Date: 20220629
  Receipt Date: 20220702
  Transmission Date: 20221026
  Serious: Yes (Death, Other)
  Sender: FDA-Public Use
  Company Number: US-NOVARTISTESTPH-NVSC2022US147885

PATIENT
  Age: 5 Year
  Sex: Male
  Weight: 30 kg

DRUGS (1)
  1. KYMRIAH [Suspect]
     Active Substance: TISAGENLECLEUCEL
     Indication: Acute lymphocytic leukaemia recurrent
     Dosage: ONCE/SINGLE (DOSE: 5.0E6 CAR-POSITIVE VIABLE T-CELLS/KG BODY WEIGHT IN 2 BAGS)
     Route: 042
     Dates: start: 20220621

REACTIONS (16)
  - Cytokine release syndrome [Fatal]
  - Hypoxia [Fatal]
  - Hypotension [Fatal]
  - Pyrexia [Fatal]
  - Bradycardia [Fatal]
  - Blood pressure diastolic decreased [Fatal]
  - International normalised ratio increased [Fatal]
  - Activated partial thromboplastin time prolonged [Fatal]
  - Blood pressure abnormal [Fatal]
  - Tachycardia [Fatal]
  - Immune effector cell-associated neurotoxicity syndrome [Unknown]
  - Encephalopathy [Unknown]
  - Acute respiratory failure [Unknown]
  - Disorientation [Unknown]
  - Coordination abnormal [Unknown]
  - Pleural effusion [Unknown]

NARRATIVE: CASE EVENT DATE: 20220621
